FAERS Safety Report 5880801-3 (Version None)
Quarter: 2008Q3

REPORT INFORMATION
  Report Type: 
  Country: None (occurrence: None)
  Receive Date: 20080912
  Receipt Date: 20080611
  Transmission Date: 20090109
  Serious: No
  Sender: FDA-Public Use
  Company Number: US-ABBOTT-08P-163-0456308-00

PATIENT
  Sex: Female
  Weight: 55.842 kg

DRUGS (12)
  1. HUMIRA [Suspect]
     Indication: RHEUMATOID ARTHRITIS
     Route: 058
     Dates: start: 20080312, end: 20080326
  2. HUMIRA [Suspect]
     Route: 058
     Dates: start: 20080412
  3. FOLIC ACID [Concomitant]
     Indication: VITAMIN SUPPLEMENTATION
     Route: 048
     Dates: start: 19900101
  4. LEVOTHYROXINE SODIUM [Concomitant]
     Indication: HYPOTHYROIDISM
     Route: 048
  5. LISINOPRIL [Concomitant]
     Indication: HYPERTENSION
     Route: 048
  6. LEFLUNOMIDE [Concomitant]
     Indication: RHEUMATOID ARTHRITIS
     Route: 048
     Dates: start: 20080101
  7. METFORMIN HCL [Concomitant]
     Indication: DIABETES MELLITUS
     Dosage: UNIT: 500 MILLIGRAM
     Route: 048
     Dates: start: 19990101
  8. HYDROCHLOROTHIAZIDE [Concomitant]
     Indication: HYPERTENSION
     Route: 048
     Dates: start: 20080301
  9. IRON [Concomitant]
     Indication: ANAEMIA
     Route: 048
     Dates: start: 20020101
  10. RISEDRONATE SODIUM [Concomitant]
     Indication: BONE DENSITY DECREASED
     Route: 048
     Dates: start: 20040101
  11. HYDROCODONE BITARTRATE [Concomitant]
     Indication: PAIN
     Dosage: 1000-1500 MG DAILY
     Route: 048
     Dates: start: 20050101, end: 20080619
  12. HYDROCODONE BITARTRATE [Concomitant]
     Dosage: 500-4000 MG DAILY; 1-2 500 MG Q 4-6 HRS
     Route: 048
     Dates: start: 20080619

REACTIONS (8)
  - CYSTITIS [None]
  - DRUG DOSE OMISSION [None]
  - DRUG INEFFECTIVE [None]
  - NASOPHARYNGITIS [None]
  - PAIN [None]
  - PYREXIA [None]
  - RHINORRHOEA [None]
  - SNEEZING [None]
